FAERS Safety Report 6753331-4 (Version None)
Quarter: 2010Q2

REPORT INFORMATION
  Report Type: 
  Country: None (occurrence: None)
  Receive Date: 20100603
  Receipt Date: 20100520
  Transmission Date: 20101027
  Serious: Yes (Hospitalization)
  Sender: FDA-Public Use
  Company Number: US-ELI_LILLY_AND_COMPANY-US201005006838

PATIENT
  Sex: Female

DRUGS (7)
  1. FORTEO [Suspect]
     Indication: OSTEOPOROSIS
     Dosage: 20 UG, DAILY (1/D)
     Dates: start: 20100326, end: 20100501
  2. NAPROXEN [Concomitant]
  3. METHOTREXATE [Concomitant]
  4. ANTIHYPERTENSIVES [Concomitant]
  5. NORVASC [Concomitant]
  6. CALCIUM CARBONATE [Concomitant]
  7. MULTI-VITAMIN [Concomitant]

REACTIONS (3)
  - FUNGAL INFECTION [None]
  - STAPHYLOCOCCAL INFECTION [None]
  - WHITE BLOOD CELL COUNT DECREASED [None]
